FAERS Safety Report 16373308 (Version 4)
Quarter: 2019Q2

REPORT INFORMATION
  Report Type: Spontaneous
  Country: CO (occurrence: CO)
  Receive Date: 20190530
  Receipt Date: 20190627
  Transmission Date: 20190711
  Serious: Yes (Other)
  Sender: FDA-Public Use
  Company Number: PHHY2019CO123334

PATIENT
  Age: 46 Year
  Sex: Female
  Weight: 59 kg

DRUGS (2)
  1. COSENTYX [Suspect]
     Active Substance: SECUKINUMAB
     Indication: ANKYLOSING SPONDYLITIS
  2. COSENTYX [Suspect]
     Active Substance: SECUKINUMAB
     Indication: PSORIASIS
     Dosage: 300 MG, QW
     Route: 058
     Dates: start: 20190514

REACTIONS (12)
  - Application site pain [Unknown]
  - Erythema multiforme [Unknown]
  - Injection site erosion [Unknown]
  - Skin lesion [Unknown]
  - Application site oedema [Unknown]
  - Skin exfoliation [Unknown]
  - Epidermal necrosis [Unknown]
  - Papule [Unknown]
  - Application site erythema [Unknown]
  - Blister [Unknown]
  - Skin necrosis [Unknown]
  - Pruritus [Unknown]

NARRATIVE: CASE EVENT DATE: 20190514
